FAERS Safety Report 22975693 (Version 2)
Quarter: 2023Q4

REPORT INFORMATION
  Report Type: Report from Study
  Country: FR (occurrence: None)
  Receive Date: 20230925
  Receipt Date: 20231130
  Transmission Date: 20240109
  Serious: Yes (Other)
  Sender: FDA-Public Use
  Company Number: FR-ROCHE-3426683

PATIENT
  Age: 68 Year
  Sex: Male
  Weight: 98 kg

DRUGS (10)
  1. VENETOCLAX [Suspect]
     Active Substance: VENETOCLAX
     Indication: Chronic lymphocytic leukaemia
     Route: 048
     Dates: start: 20220810
  2. RITUXIMAB [Suspect]
     Active Substance: RITUXIMAB
     Indication: Chronic lymphocytic leukaemia
     Route: 041
     Dates: start: 20220921
  3. INDAPAMIDE\PERINDOPRIL [Concomitant]
     Active Substance: INDAPAMIDE\PERINDOPRIL
  4. LERCANIDIPINE [Concomitant]
     Active Substance: LERCANIDIPINE
  5. TOUJEO [Concomitant]
     Active Substance: INSULIN GLARGINE
  6. METFORMIN PAMOATE [Concomitant]
     Active Substance: METFORMIN PAMOATE
  7. GLIMEPIRIDE [Concomitant]
     Active Substance: GLIMEPIRIDE
  8. ALLOPURINOL [Concomitant]
     Active Substance: ALLOPURINOL
  9. DAFALGAN [Concomitant]
     Active Substance: ACETAMINOPHEN
  10. FENOFIBRATE [Concomitant]
     Active Substance: FENOFIBRATE
     Dates: start: 202309

REACTIONS (1)
  - Hypertriglyceridaemia [Not Recovered/Not Resolved]

NARRATIVE: CASE EVENT DATE: 20230907
